FAERS Safety Report 6100838-9 (Version None)
Quarter: 2009Q1

REPORT INFORMATION
  Report Type: 
  Country: None (occurrence: None)
  Receive Date: 20090304
  Receipt Date: 20090218
  Transmission Date: 20090719
  Serious: Yes (Other)
  Sender: FDA-Public Use
  Company Number: IL-RANBAXY-2009RR-21966

PATIENT
  Age: 53 Year
  Sex: Female

DRUGS (10)
  1. AMOXICILLIN [Suspect]
  2. CLINDAMYCIN HYDROCHLORIDE [Suspect]
  3. IBUPROFEN [Suspect]
  4. PARACETAMOL [Suspect]
  5. LIDOCAINE [Suspect]
  6. CLINDAMYCIN HCL [Concomitant]
  7. AMOXICILLIN [Concomitant]
  8. IBUPROFEN [Concomitant]
  9. PARACETAMOL [Concomitant]
  10. LIDOCAINE [Concomitant]

REACTIONS (1)
  - DRUG ERUPTION [None]
